FAERS Safety Report 16343189 (Version 4)
Quarter: 2019Q4

REPORT INFORMATION
  Report Type: Report from Study
  Country: US (occurrence: US)
  Receive Date: 20190522
  Receipt Date: 20191203
  Transmission Date: 20200122
  Serious: No
  Sender: FDA-Public Use
  Company Number: PHEH2019US021725

PATIENT
  Sex: Female

DRUGS (2)
  1. COSENTYX [Suspect]
     Active Substance: SECUKINUMAB
     Indication: PSORIATIC ARTHROPATHY
     Dosage: 300 MG, QW
     Route: 058
     Dates: start: 20190513
  2. COSENTYX [Suspect]
     Active Substance: SECUKINUMAB
     Indication: PSORIASIS
     Dosage: 300 MG, QMO
     Route: 058

REACTIONS (7)
  - Oral herpes [Not Recovered/Not Resolved]
  - Wrong technique in device usage process [Unknown]
  - Therapeutic response shortened [Unknown]
  - Psoriasis [Not Recovered/Not Resolved]
  - Skin plaque [Unknown]
  - Incorrect dose administered [Unknown]
  - Stress [Unknown]
